FAERS Safety Report 21418470 (Version 1)
Quarter: 2022Q4

REPORT INFORMATION
  Report Type: Spontaneous
  Country: DE (occurrence: DE)
  Receive Date: 20221006
  Receipt Date: 20221006
  Transmission Date: 20230113
  Serious: Yes (Hospitalization, Other)
  Sender: FDA-Public Use
  Company Number: DE-ADRED-07945-01

PATIENT
  Age: 76 Year
  Sex: Male
  Weight: 92 kg

DRUGS (7)
  1. CARBOPLATIN [Suspect]
     Active Substance: CARBOPLATIN
     Indication: Product used for unknown indication
     Route: 065
  2. PACLITAXEL [Suspect]
     Active Substance: PACLITAXEL
     Indication: Product used for unknown indication
     Dosage: SCHEMA
     Route: 065
  3. PEMBROLIZUMAB [Suspect]
     Active Substance: PEMBROLIZUMAB
     Indication: Product used for unknown indication
     Dosage: SCHEMA
     Route: 065
  4. Acetylsalicyls?re [Concomitant]
     Indication: Product used for unknown indication
     Dosage: 100 MG, 1-0-0-0
     Route: 065
  5. CANDESARTAN [Concomitant]
     Active Substance: CANDESARTAN
     Indication: Product used for unknown indication
     Dosage: 1-0-0-0
     Route: 065
  6. Olodaterol/Tiotropiumbromid [Concomitant]
     Indication: Product used for unknown indication
     Dosage: 2.5|2.5 MG, 2-0-0-0
     Route: 065
  7. AMLODIPINE BESYLATE [Concomitant]
     Active Substance: AMLODIPINE BESYLATE
     Indication: Product used for unknown indication
     Dosage: 5 MG, 1-0-1-0
     Route: 065

REACTIONS (10)
  - Pneumonia [None]
  - Dyspnoea [None]
  - Tachycardia [None]
  - Oedema peripheral [None]
  - General physical health deterioration [None]
  - Condition aggravated [None]
  - Cough [None]
  - Systemic infection [None]
  - Anaemia [None]
  - Pyrexia [None]
